FAERS Safety Report 9574336 (Version 2)
Quarter: 2013Q4

REPORT INFORMATION
  Report Type: Report from Study
  Country: JP (occurrence: JP)
  Receive Date: 20131001
  Receipt Date: 20131001
  Transmission Date: 20140711
  Serious: Yes (Death)
  Sender: FDA-Public Use
  Company Number: JP-TAKEDA-TCI2013A04662

PATIENT
  Age: 85 Year
  Sex: Male
  Weight: 47 kg

DRUGS (8)
  1. NESINA TABLETS 25MG [Suspect]
     Dosage: 25 MG, QD
     Route: 048
     Dates: start: 20120326, end: 20121022
  2. BLOPRESS [Concomitant]
     Route: 048
  3. BLOPRESS [Concomitant]
     Route: 048
  4. NELBIS [Concomitant]
     Indication: TYPE 2 DIABETES MELLITUS
     Route: 048
     Dates: end: 20121022
  5. AMARYL [Concomitant]
     Indication: TYPE 2 DIABETES MELLITUS
     Route: 048
     Dates: end: 20121022
  6. PLAVIX [Concomitant]
     Route: 048
  7. PLAVIX [Concomitant]
     Route: 048
  8. BASEN 1 [Concomitant]
     Indication: TYPE 2 DIABETES MELLITUS
     Route: 048
     Dates: start: 20120507, end: 20121022

REACTIONS (3)
  - Death [Fatal]
  - Decreased appetite [Fatal]
  - Malnutrition [Fatal]
